FAERS Safety Report 10070312 (Version 2)
Quarter: 2014Q2

REPORT INFORMATION
  Report Type: Spontaneous
  Country: DE (occurrence: DE)
  Receive Date: 20140410
  Receipt Date: 20140430
  Transmission Date: 20141212
  Serious: Yes (Hospitalization, Other)
  Sender: FDA-Public Use
  Company Number: DE-BRISTOL-MYERS SQUIBB COMPANY-20583522

PATIENT
  Age: 63 Year
  Sex: Male
  Weight: 120 kg

DRUGS (9)
  1. DASATINIB [Suspect]
     Indication: CHRONIC MYELOID LEUKAEMIA
     Dates: start: 20130401, end: 20130801
  2. BLOPRESS [Concomitant]
  3. TOREM [Concomitant]
  4. CLOPIDOGREL BISULFATE [Concomitant]
  5. BELOC-ZOK [Concomitant]
  6. SORTIS [Concomitant]
  7. SPIRIVA [Concomitant]
  8. INSULIN ACTRAPID [Concomitant]
     Dosage: 1DF=2/3 OF THE FORMER DOSE
  9. LANTUS [Concomitant]

REACTIONS (5)
  - Bronchiolitis [Unknown]
  - Tricuspid valve incompetence [Unknown]
  - Pulmonary arterial pressure increased [Recovered/Resolved]
  - Dyspnoea exertional [Recovered/Resolved]
  - Cardiac failure [Recovered/Resolved]
